FAERS Safety Report 4270746-7 (Version None)
Quarter: 2004Q1

REPORT INFORMATION
  Report Type: 
  Country: None (occurrence: None)
  Receive Date: 20040113
  Receipt Date: 20040107
  Transmission Date: 20041129
  Serious: Yes (Hospitalization)
  Sender: FDA-Public Use
  Company Number: 235134K03USA

PATIENT
  Age: 52 Year
  Sex: Female

DRUGS (2)
  1. REBIF [Suspect]
     Indication: MULTIPLE SCLEROSIS
     Dates: start: 20020912
  2. PAROXETINE HCL [Concomitant]

REACTIONS (4)
  - DEEP VEIN THROMBOSIS [None]
  - FREQUENT BOWEL MOVEMENTS [None]
  - POSTOPERATIVE THROMBOSIS [None]
  - RECTAL CANCER [None]
